FAERS Safety Report 6793673-X (Version None)
Quarter: 2010Q2

REPORT INFORMATION
  Report Type: 
  Country: None (occurrence: None)
  Receive Date: 20100624
  Receipt Date: 20090226
  Transmission Date: 20101027
  Serious: Yes (Other)
  Sender: FDA-Public Use
  Company Number: US-PFIZER INC-2009154610

PATIENT
  Sex: Male

DRUGS (3)
  1. CADUET [Suspect]
     Indication: HYPERTENSION
  2. CADUET [Suspect]
     Indication: HYPERLIPIDAEMIA
  3. ACETYLSALICYLIC ACID [Concomitant]
     Dosage: UNK

REACTIONS (2)
  - GINGIVAL HYPERPLASIA [None]
  - GINGIVAL SWELLING [None]
